FAERS Safety Report 11228446 (Version 1)
Quarter: 2015Q2

REPORT INFORMATION
  Report Type: Report from Study
  Country: AR (occurrence: AR)
  Receive Date: 20150630
  Receipt Date: 20150630
  Transmission Date: 20150821
  Serious: Yes (Other)
  Sender: FDA-Public Use
  Company Number: AR-ABBVIE-15P-007-1416297-00

PATIENT
  Age: 64 Year
  Sex: Male

DRUGS (1)
  1. ZEMPLAR [Suspect]
     Active Substance: PARICALCITOL
     Indication: HYPERPARATHYROIDISM SECONDARY
     Route: 042
     Dates: start: 20140401

REACTIONS (2)
  - Gastric haemorrhage [Recovered/Resolved]
  - Gastric varices haemorrhage [Recovered/Resolved]

NARRATIVE: CASE EVENT DATE: 20150619
